FAERS Safety Report 10188181 (Version 1)
Quarter: 2014Q2

REPORT INFORMATION
  Report Type: Spontaneous
  Country: AT (occurrence: AT)
  Receive Date: 20140522
  Receipt Date: 20140522
  Transmission Date: 20141212
  Serious: Yes (Hospitalization, Other)
  Sender: FDA-Public Use
  Company Number: AT-PFIZER INC-2014139723

PATIENT
  Age: 69 Year
  Sex: Female

DRUGS (16)
  1. PANTOLOC [Suspect]
     Dosage: 40 MG, DAILY
     Dates: start: 2008
  2. TRITTICO [Suspect]
     Dosage: 150 MG, DAILY
     Dates: start: 2008, end: 20091202
  3. TRITTICO [Suspect]
     Dosage: 100 MG, DAILY
     Dates: start: 20091203, end: 20091205
  4. TRITTICO [Suspect]
     Dosage: 200 MG, DAILY
     Dates: start: 20091206, end: 20091206
  5. TRITTICO [Suspect]
     Dosage: 50 MG, DAILY
     Dates: start: 20091207
  6. DYTIDE H [Suspect]
     Dosage: 2 MG, DAILY
     Route: 048
     Dates: start: 2008
  7. CYMBALTA [Suspect]
     Dosage: 90 MG, DAILY
     Dates: start: 2008
  8. TRILEPTAL [Suspect]
     Dosage: 600 MG, DAILY
     Dates: start: 20091203, end: 20091203
  9. TRILEPTAL [Suspect]
     Dosage: 900 MG, DAILY
     Dates: start: 20091204, end: 20091206
  10. FOLSAN [Concomitant]
     Dosage: UNK
     Dates: start: 2007
  11. METHOTREXATE SODIUM [Concomitant]
     Dosage: UNK
     Dates: start: 2007
  12. NEURONTIN [Concomitant]
     Dosage: UNK
     Dates: start: 2008, end: 20091130
  13. DUROGESIC [Concomitant]
     Dosage: 25 MCG/HR
     Route: 062
     Dates: start: 2008
  14. PRAXITEN [Concomitant]
     Dosage: UNK
     Dates: start: 20091104
  15. CONVULEX [Concomitant]
     Dosage: UNK
     Dates: start: 20091207, end: 20091207
  16. SAROTEN [Concomitant]
     Dosage: UNK
     Dates: start: 20091207

REACTIONS (6)
  - Brain oedema [Unknown]
  - Therapy cessation [Unknown]
  - Hyponatraemia [Recovered/Resolved]
  - Nausea [Recovered/Resolved]
  - Feeling abnormal [Recovered/Resolved]
  - Vomiting [Recovered/Resolved]
